FAERS Safety Report 7050679-3 (Version None)
Quarter: 2010Q4

REPORT INFORMATION
  Report Type: 
  Country: None (occurrence: None)
  Receive Date: 20101018
  Receipt Date: 20101005
  Transmission Date: 20110411
  Serious: Yes (Other)
  Sender: FDA-Public Use
  Company Number: GB-MYLANLABS-2010S1018417

PATIENT
  Age: 28 Year
  Sex: Female

DRUGS (7)
  1. MIRTAZAPINE [Suspect]
     Indication: DEPRESSION
     Dates: start: 20020301
  2. MIRTAZAPINE [Suspect]
     Dates: end: 20080701
  3. ENTACAPONE [Suspect]
     Indication: PARKINSON'S DISEASE
  4. SINEMET [Suspect]
     Indication: PARKINSON'S DISEASE
  5. APOMORPHINE [Concomitant]
     Indication: PRODUCT USED FOR UNKNOWN INDICATION
     Dosage: DISCONTINUED THERAPY
     Route: 058
  6. DOMPERIDONE [Concomitant]
     Indication: PRODUCT USED FOR UNKNOWN INDICATION
  7. VENLAFAXINE [Concomitant]
     Indication: DEPRESSION

REACTIONS (7)
  - DECREASED APPETITE [None]
  - DEPRESSION [None]
  - DYSKINESIA [None]
  - DYSTONIA [None]
  - FATIGUE [None]
  - NAUSEA [None]
  - TREMOR [None]
